FAERS Safety Report 6007355-5 (Version None)
Quarter: 2008Q4

REPORT INFORMATION
  Report Type: 
  Country: None (occurrence: None)
  Receive Date: 20081217
  Receipt Date: 20080314
  Transmission Date: 20090506
  Serious: No
  Sender: FDA-Public Use
  Company Number: US-ASTRAZENECA-2008UW05327

PATIENT
  Age: 58 Year
  Sex: Female
  Weight: 124.7 kg

DRUGS (6)
  1. CRESTOR [Suspect]
     Indication: BLOOD CHOLESTEROL INCREASED
     Route: 048
     Dates: start: 20070601
  2. PREVACID [Concomitant]
  3. PROZAC [Concomitant]
  4. XANAX [Concomitant]
  5. WELLBUTRIN [Concomitant]
  6. ALLEGRA [Concomitant]

REACTIONS (2)
  - BURNING SENSATION [None]
  - MYALGIA [None]
